FAERS Safety Report 10405288 (Version 1)
Quarter: 2014Q3

REPORT INFORMATION
  Report Type: Spontaneous
  Country: JP (occurrence: JP)
  Receive Date: 20140825
  Receipt Date: 20140825
  Transmission Date: 20150326
  Serious: No
  Sender: FDA-Public Use
  Company Number: JP-JNJFOC-20140814086

PATIENT

DRUGS (2)
  1. DUROTEP MT [Suspect]
     Active Substance: FENTANYL
     Indication: CANCER PAIN
     Dosage: APPLY 1.5 PATCHES OF FENTANYL (MATRIX PATCH)
     Route: 062
  2. DUROTEP MT [Suspect]
     Active Substance: FENTANYL
     Indication: PAIN
     Dosage: APPLY 1.5 PATCHES OF FENTANYL (MATRIX PATCH)
     Route: 062

REACTIONS (1)
  - Drug prescribing error [Unknown]
